FAERS Safety Report 7518977-4 (Version None)
Quarter: 2011Q2

REPORT INFORMATION
  Report Type: 
  Country: None (occurrence: None)
  Receive Date: 20110602
  Receipt Date: 20110518
  Transmission Date: 20111010
  Serious: Yes (Other)
  Sender: FDA-Public Use
  Company Number: IT-GENENTECH-319395

PATIENT
  Age: 31 Year
  Sex: Female

DRUGS (4)
  1. RITUXIMAB [Suspect]
     Indication: VASCULITIS GASTROINTESTINAL
     Dosage: 375 MG/M2, 1/WEEK
     Route: 065
  2. PREDNISONE [Concomitant]
     Indication: VASCULITIS GASTROINTESTINAL
     Dosage: UNK
  3. PREDNISONE [Concomitant]
     Dosage: UNK
  4. RITUXIMAB [Suspect]
     Dosage: 375 MG/M2, UNK
     Route: 065

REACTIONS (1)
  - HEPATITIS C [None]
